FAERS Safety Report 8966557 (Version 1)
Quarter: 2012Q4

REPORT INFORMATION
  Report Type: 
  Country: US (occurrence: US)
  Receive Date: 20121217
  Receipt Date: 20121217
  Transmission Date: 20130627
  Serious: No
  Sender: FDA-Public Use
  Company Number: US-PFIZER INC-2012318070

PATIENT
  Age: 87 Year
  Sex: Female
  Weight: 58.96 kg

DRUGS (2)
  1. ACCUPRIL [Suspect]
     Dosage: 10 mg, daily
     Dates: start: 2010
  2. BABY ASPIRIN [Concomitant]
     Indication: DIURETIC THERAPY
     Dosage: UNK

REACTIONS (1)
  - Nasopharyngitis [Recovered/Resolved]
